FAERS Safety Report 13154468 (Version 8)
Quarter: 2017Q2

REPORT INFORMATION
  Report Type: Report from Study
  Country: US (occurrence: US)
  Receive Date: 20170126
  Receipt Date: 20170511
  Transmission Date: 20170830
  Serious: Yes (Hospitalization, Other)
  Sender: FDA-Public Use
  Company Number: US-PFIZER INC-2017011953

PATIENT
  Age: 80 Year
  Sex: Female

DRUGS (5)
  1. IBRANCE [Suspect]
     Active Substance: PALBOCICLIB
     Dosage: 100 MG, 1X/DAY
     Route: 048
     Dates: start: 20170216
  2. IBRANCE [Suspect]
     Active Substance: PALBOCICLIB
     Dosage: 100 MG (ONCE DAILY)
     Route: 048
     Dates: start: 20170107, end: 20170314
  3. IBRANCE [Suspect]
     Active Substance: PALBOCICLIB
     Dosage: 125 MG, DAILY (QD)
     Route: 048
     Dates: start: 20170107
  4. IBRANCE [Suspect]
     Active Substance: PALBOCICLIB
     Indication: BREAST CANCER
     Dosage: 100 MG, DAILY (QD)
     Route: 048
     Dates: start: 20170107, end: 20170120
  5. IBRANCE [Suspect]
     Active Substance: PALBOCICLIB
     Dosage: 125 MG (ONCE DAILY)
     Route: 048
     Dates: start: 20170315

REACTIONS (11)
  - Dyspnoea [Unknown]
  - Pneumonia [Recovered/Resolved]
  - Leukopenia [Not Recovered/Not Resolved]
  - Eructation [Unknown]
  - Abdominal pain [Not Recovered/Not Resolved]
  - Vomiting [Not Recovered/Not Resolved]
  - Dyspepsia [Unknown]
  - Cough [Not Recovered/Not Resolved]
  - Chest pain [Unknown]
  - Pyrexia [Unknown]
  - Headache [Unknown]

NARRATIVE: CASE EVENT DATE: 2017
